FAERS Safety Report 12936148 (Version 1)
Quarter: 2016Q4

REPORT INFORMATION
  Report Type: Spontaneous
  Country: US (occurrence: US)
  Receive Date: 20161111
  Receipt Date: 20161111
  Transmission Date: 20170207
  Serious: Yes (Death)
  Sender: FDA-Public Use
  Company Number: None

PATIENT
  Age: 47 Year
  Sex: Female
  Weight: 98.6 kg

DRUGS (1)
  1. SUNITINIB [Suspect]
     Active Substance: SUNITINIB
     Indication: MYELOID LEUKAEMIA
     Route: 048
     Dates: start: 20161104, end: 20161105

REACTIONS (1)
  - Disease progression [None]

NARRATIVE: CASE EVENT DATE: 20161110
